FAERS Safety Report 7214101-6 (Version None)
Quarter: 2010Q4

REPORT INFORMATION
  Report Type: 
  Country: None (occurrence: None)
  Receive Date: 20101126
  Receipt Date: 20100318
  Transmission Date: 20110411
  Serious: Yes (Other)
  Sender: FDA-Public Use
  Company Number: WAES 1003USA03064

PATIENT
  Age: 57 Year
  Sex: Female

DRUGS (1)
  1. FOSAMAX [Suspect]
     Dosage: PO
     Route: 048

REACTIONS (5)
  - BONE FORMATION DECREASED [None]
  - BONE RESORPTION TEST ABNORMAL [None]
  - FEMUR FRACTURE [None]
  - PAIN IN EXTREMITY [None]
  - VITAMIN D DECREASED [None]
